FAERS Safety Report 14718065 (Version 3)
Quarter: 2018Q4

REPORT INFORMATION
  Report Type: Spontaneous
  Country: US (occurrence: US)
  Receive Date: 20180404
  Receipt Date: 20181119
  Transmission Date: 20190204
  Serious: Yes (Other)
  Sender: FDA-Public Use
  Company Number: US-SA-2018SA066237

PATIENT
  Age: 20 Year
  Sex: Female
  Weight: 54.4 kg

DRUGS (2)
  1. DUPIXENT [Suspect]
     Active Substance: DUPILUMAB
     Indication: DERMATITIS ATOPIC
     Dosage: 600 MG,1X
     Route: 058
     Dates: start: 20180130, end: 20180130
  2. DUPIXENT [Suspect]
     Active Substance: DUPILUMAB
     Dosage: 1 DF, QOW
     Route: 058
     Dates: start: 201803

REACTIONS (5)
  - Dermatitis atopic [Unknown]
  - Therapeutic response decreased [Unknown]
  - Panniculitis [Unknown]
  - Product dose omission [Unknown]
  - Eczema [Unknown]
